FAERS Safety Report 7164486-4 (Version None)
Quarter: 2010Q4

REPORT INFORMATION
  Report Type: 
  Country: None (occurrence: None)
  Receive Date: 20101215
  Receipt Date: 20101207
  Transmission Date: 20110411
  Serious: Yes (Other)
  Sender: FDA-Public Use
  Company Number: CH-ABBOTT-10P-151-0689976-00

PATIENT
  Age: 35 Year
  Sex: Male

DRUGS (5)
  1. HUMIRA [Suspect]
     Indication: RHEUMATOID ARTHRITIS
     Dates: start: 20090518
  2. HUMIRA [Suspect]
     Dates: start: 20101025
  3. HUMIRA [Suspect]
     Dates: end: 20101025
  4. METHOTREXATE [Suspect]
     Indication: RHEUMATOID ARTHRITIS
     Dates: start: 20090518
  5. PREDNISOLONE [Suspect]
     Indication: RHEUMATOID ARTHRITIS
     Dates: end: 20101025

REACTIONS (7)
  - DRUG INEFFECTIVE [None]
  - FORMICATION [None]
  - PAIN [None]
  - PARAESTHESIA [None]
  - PERIPHERAL COLDNESS [None]
  - RHEUMATOID VASCULITIS [None]
  - SKIN DISCOLOURATION [None]
